FAERS Safety Report 8597065-2 (Version None)
Quarter: 2012Q3

REPORT INFORMATION
  Report Type: 
  Country: None (occurrence: None)
  Receive Date: 20120816
  Receipt Date: 20120809
  Transmission Date: 20120928
  Serious: Yes (Death)
  Sender: FDA-Public Use
  Company Number: DK-BIOGENIDEC-2012BI021357

PATIENT
  Age: 56 Year
  Sex: Male

DRUGS (5)
  1. TYSABRI [Suspect]
     Indication: MULTIPLE SCLEROSIS
     Route: 042
     Dates: start: 20070926, end: 20111103
  2. ZYPREXA [Concomitant]
  3. LAMICTAL [Concomitant]
  4. BENDROFLUMETHIAZIDE [Concomitant]
  5. PLENDIL [Concomitant]

REACTIONS (1)
  - CARDIAC ARREST [None]
